FAERS Safety Report 8212047-8 (Version None)
Quarter: 2012Q1

REPORT INFORMATION
  Report Type: 
  Country: None (occurrence: None)
  Receive Date: 20120315
  Receipt Date: 20120305
  Transmission Date: 20120608
  Serious: Yes (Hospitalization, Other)
  Sender: FDA-Public Use
  Company Number: PHHY2012FR019776

PATIENT
  Age: 73 Year
  Sex: Male

DRUGS (5)
  1. ONBREZ [Suspect]
     Indication: CHRONIC OBSTRUCTIVE PULMONARY DISEASE
     Dosage: 150 UG, UNK
  2. METFORMIN HCL [Concomitant]
  3. SARTAN [Concomitant]
  4. ASPIRIN [Concomitant]
  5. REPAGLINIDE [Concomitant]

REACTIONS (7)
  - EJECTION FRACTION DECREASED [None]
  - CARDIAC FAILURE [None]
  - FATIGUE [None]
  - OEDEMA [None]
  - RENAL ARTERY STENOSIS [None]
  - DYSPNOEA [None]
  - ASCITES [None]
